FAERS Safety Report 25451635 (Version 4)
Quarter: 2025Q4

REPORT INFORMATION
  Report Type: Spontaneous
  Country: US (occurrence: US)
  Receive Date: 20250618
  Receipt Date: 20251111
  Transmission Date: 20260118
  Serious: Yes (Other)
  Sender: SANOFI AVENTIS
  Company Number: US-SA-2025SA172033

PATIENT
  Age: 5 Year
  Sex: Female
  Weight: 17 kg

DRUGS (3)
  1. NEXVIAZYME [Suspect]
     Active Substance: AVALGLUCOSIDASE ALFA-NGPT
     Indication: Product used for unknown indication
     Dosage: 600 MG, BIM
     Dates: start: 2022
  2. NEXVIAZYME [Suspect]
     Active Substance: AVALGLUCOSIDASE ALFA-NGPT
     Dosage: 700 MG, BIM
     Route: 042
     Dates: start: 202504, end: 20250915
  3. DAYBUE [Concomitant]
     Active Substance: TROFINETIDE
     Indication: Rett syndrome
     Dosage: 3 ML 1 DOSE EVERY 12 HOUR
     Dates: start: 2023

REACTIONS (3)
  - Epilepsy [Recovered/Resolved]
  - Seizure [Unknown]
  - Incorrect drug administration rate [Unknown]
